FAERS Safety Report 16880153 (Version 3)
Quarter: 2020Q1

REPORT INFORMATION
  Report Type: Report from Study
  Country: FR (occurrence: FR)
  Receive Date: 20191003
  Receipt Date: 20200106
  Transmission Date: 20200409
  Serious: Yes (Death, Hospitalization, Other)
  Sender: FDA-Public Use
  Company Number: FR-ROCHE-2345992

PATIENT
  Age: 65 Year
  Sex: Male

DRUGS (2)
  1. VINORELBINE [Suspect]
     Active Substance: VINORELBINE TARTRATE
     Indication: NON-SMALL CELL LUNG CANCER STAGE IV
     Dosage: LAST ADMINISTRATION OF VINORELBINE BEFORE THE SAE: 11/JUN/2019 (CYCLE 5)
     Route: 065
     Dates: start: 20190319, end: 20190702
  2. ATEZOLIZUMAB. [Suspect]
     Active Substance: ATEZOLIZUMAB
     Indication: NON-SMALL CELL LUNG CANCER STAGE IV
     Dosage: LAST ADMINISTRATION OF ATEZOLIZUMAB BEFORE THE SAE: 11/JUN/2019 (CYCLE 5)
     Route: 042
     Dates: start: 20190319, end: 20190702

REACTIONS (7)
  - Pleurisy [Not Recovered/Not Resolved]
  - Anaemia [Unknown]
  - Respiratory acidosis [Fatal]
  - Febrile bone marrow aplasia [Recovered/Resolved]
  - Dyspnoea [Fatal]
  - Dyspnoea [Unknown]
  - Neutropenia [Unknown]

NARRATIVE: CASE EVENT DATE: 20190505
